FAERS Safety Report 6581598-4 (Version None)
Quarter: 2010Q1

REPORT INFORMATION
  Report Type: 
  Country: None (occurrence: None)
  Receive Date: 20100211
  Receipt Date: 20100211
  Transmission Date: 20100710
  Serious: Yes (Other)
  Sender: FDA-Public Use
  Company Number: None

PATIENT
  Age: 55 Year
  Sex: Female
  Weight: 63.5036 kg

DRUGS (1)
  1. DILTX 120MG APOTEX [Suspect]
     Indication: ATRIAL TACHYCARDIA
     Dosage: 120 MG QD PO
     Route: 048
     Dates: start: 20090906, end: 20100127

REACTIONS (4)
  - DRUG EFFECT DECREASED [None]
  - GASTROOESOPHAGEAL REFLUX DISEASE [None]
  - PRODUCT SUBSTITUTION ISSUE [None]
  - RESPIRATORY DISORDER [None]
